FAERS Safety Report 4639987-0 (Version None)
Quarter: 2005Q2

REPORT INFORMATION
  Report Type: 
  Country: None (occurrence: None)
  Receive Date: 20050420
  Receipt Date: 20050328
  Transmission Date: 20051028
  Serious: Yes (Hospitalization)
  Sender: FDA-Public Use
  Company Number: 200510946JP

PATIENT
  Age: 79 Year
  Sex: Female
  Weight: 42 kg

DRUGS (1)
  1. LASIX [Suspect]
     Indication: OEDEMA
     Route: 048
     Dates: end: 20040522

REACTIONS (11)
  - ARTERIAL THROMBOSIS LIMB [None]
  - DRUG ERUPTION [None]
  - FEMORAL ARTERY OCCLUSION [None]
  - HAEMATURIA [None]
  - HAEMODIALYSIS [None]
  - HAEMORRHAGE [None]
  - HYPERTENSION [None]
  - INFECTION [None]
  - OEDEMA PERIPHERAL [None]
  - PULMONARY INFARCTION [None]
  - RENAL FAILURE ACUTE [None]
